FAERS Safety Report 5738294-2 (Version None)
Quarter: 2008Q2

REPORT INFORMATION
  Report Type: 
  Country: None (occurrence: None)
  Receive Date: 20080513
  Receipt Date: 20080506
  Transmission Date: 20081010
  Serious: Yes (Hospitalization, Other)
  Sender: FDA-Public Use
  Company Number: 163-21880-08010239

PATIENT
  Age: 86 Year
  Sex: Male

DRUGS (5)
  1. REVLIMID [Suspect]
     Indication: MULTIPLE MYELOMA
     Dosage: 5 MG, 1 IN 1 D, ORAL
     Route: 048
     Dates: start: 20071211
  2. DEXAMETHASONE TAB [Concomitant]
  3. MIRALAX [Concomitant]
  4. B12 (CYANOCOBALAMIN) [Concomitant]
  5. ARANESP [Concomitant]

REACTIONS (5)
  - BONE MARROW FAILURE [None]
  - CONSTIPATION [None]
  - HAEMORRHAGE [None]
  - NEUROPATHY PERIPHERAL [None]
  - THROMBOCYTOPENIA [None]
